FAERS Safety Report 9331700 (Version 1)
Quarter: 2013Q2

REPORT INFORMATION
  Report Type: Spontaneous
  Country: GB (occurrence: GB)
  Receive Date: 20130605
  Receipt Date: 20130605
  Transmission Date: 20140414
  Serious: Yes (Other)
  Sender: FDA-Public Use
  Company Number: GB-ASTRAZENECA-2013SE37671

PATIENT
  Age: 56 Year
  Sex: Male

DRUGS (5)
  1. OMEPRAZOLE [Suspect]
     Indication: REFLUX GASTRITIS
     Route: 048
     Dates: start: 20070216, end: 20130403
  2. AMITRIPTYLINE [Concomitant]
  3. CO-CODAMOL [Concomitant]
  4. DOMPERIDONE [Concomitant]
  5. NAPROXEN [Concomitant]

REACTIONS (4)
  - Blood creatine phosphokinase increased [Recovering/Resolving]
  - Myopathy [Recovering/Resolving]
  - Pain in extremity [Recovering/Resolving]
  - Muscular weakness [Unknown]
